FAERS Safety Report 8063728-0 (Version None)
Quarter: 2012Q1

REPORT INFORMATION
  Report Type: 
  Country: None (occurrence: None)
  Receive Date: 20120123
  Receipt Date: 20120116
  Transmission Date: 20120608
  Serious: Yes (Other)
  Sender: FDA-Public Use
  Company Number: PHHY2012BE004437

PATIENT
  Age: 49 Year
  Sex: Female

DRUGS (4)
  1. TAMOXIFEN CITRATE [Concomitant]
  2. EPIRUBICIN [Suspect]
     Indication: BREAST CANCER
     Dosage: 100 MG/M2, UNK
  3. CYCLOPHOSPHAMIDE [Suspect]
     Indication: BREAST CANCER
     Dosage: 500 MG/M2, UNK
  4. FLUOROURACIL [Suspect]
     Indication: BREAST CANCER
     Dosage: 500 MG/M2, UNK

REACTIONS (1)
  - AMENORRHOEA [None]
